FAERS Safety Report 5688159-X (Version None)
Quarter: 2008Q1

REPORT INFORMATION
  Report Type: 
  Country: None (occurrence: None)
  Receive Date: 20080327
  Receipt Date: 20080321
  Transmission Date: 20080703
  Serious: Yes (Hospitalization)
  Sender: FDA-Public Use
  Company Number: CERZ-11770

PATIENT
  Age: 8 Year
  Weight: 12 kg

DRUGS (18)
  1. CEREZYME [Suspect]
     Indication: GAUCHER'S DISEASE
     Dosage: 600 U, QW, INTRAVENOUS
     Route: 058
     Dates: start: 19990118
  2. CEREZYME [Suspect]
  3. CEREZYME [Suspect]
  4. CEREZYME [Suspect]
  5. CEREZYME [Suspect]
  6. CEREZYME [Suspect]
  7. VALPROATE SODIUM [Concomitant]
  8. CLONAZEPAM [Concomitant]
  9. FAMOTIDINE [Concomitant]
  10. DOMPERIDONE (DOMPERIDONE) [Concomitant]
  11. DIAZEPAM [Concomitant]
  12. DANTROLENE SODIUM [Concomitant]
  13. ZONISAMIDE [Concomitant]
  14. FUROSEMIDE [Concomitant]
  15. SPIRONOLACTONE [Concomitant]
  16. ANTIBIOTICS - RESISTANT LACTIC ACID BACTERIAE [Concomitant]
  17. ASCORBIC ACID - CALCIUM PANTOTHENATE [Concomitant]
  18. ALFACALCIDOL (ALFACALCIDOL) [Concomitant]

REACTIONS (10)
  - BLOOD ALKALINE PHOSPHATASE INCREASED [None]
  - CENTRAL LINE INFECTION [None]
  - FEMUR FRACTURE [None]
  - HEAT STROKE [None]
  - HEPATOCELLULAR INJURY [None]
  - MUSCLE INJURY [None]
  - PNEUMONIA [None]
  - STAPHYLOCOCCAL INFECTION [None]
  - UPPER RESPIRATORY TRACT INFLAMMATION [None]
  - URINARY TRACT INFECTION [None]
